FAERS Safety Report 5897428-X (Version None)
Quarter: 2008Q3

REPORT INFORMATION
  Report Type: 
  Country: None (occurrence: None)
  Receive Date: 20080925
  Receipt Date: 20080916
  Transmission Date: 20090109
  Serious: Yes (Other)
  Sender: FDA-Public Use
  Company Number: FR-JNJFOC-20080904709

PATIENT
  Sex: Male

DRUGS (2)
  1. TOPALGIC [Suspect]
     Route: 048
  2. TOPALGIC [Suspect]
     Indication: BACK PAIN
     Route: 048

REACTIONS (8)
  - AGITATION [None]
  - DEPRESSION [None]
  - DRUG DEPENDENCE [None]
  - EXTRASYSTOLES [None]
  - FATIGUE [None]
  - PALPITATIONS [None]
  - SLEEP DISORDER [None]
  - WITHDRAWAL SYNDROME [None]
